FAERS Safety Report 6900290-7 (Version None)
Quarter: 2010Q3

REPORT INFORMATION
  Report Type: 
  Country: None (occurrence: None)
  Receive Date: 20100708
  Receipt Date: 20100326
  Transmission Date: 20110219
  Serious: Yes (Other)
  Sender: FDA-Public Use
  Company Number: 2010039982

PATIENT
  Age: 53 Year
  Sex: Female
  Weight: 59.4 kg

DRUGS (5)
  1. CHANTIX [Suspect]
     Indication: SMOKING CESSATION THERAPY
     Dosage: 0.5 MG, DAILY, ORAL 1 MG, 2X/DAY, ORAL
     Route: 048
     Dates: start: 20100210, end: 20100101
  2. CHANTIX [Suspect]
     Indication: SMOKING CESSATION THERAPY
     Dosage: 0.5 MG, DAILY, ORAL 1 MG, 2X/DAY, ORAL
     Route: 048
     Dates: start: 20100101
  3. ESTRADIOL [Concomitant]
  4. PROMETRIUM [Concomitant]
  5. WELLBUTRIN [Concomitant]

REACTIONS (7)
  - ABDOMINAL DISTENSION [None]
  - ABNORMAL DREAMS [None]
  - ANXIETY [None]
  - ARTHRALGIA [None]
  - CONSTIPATION [None]
  - INSOMNIA [None]
  - NAUSEA [None]
